FAERS Safety Report 17075609 (Version 1)
Quarter: 2019Q4

REPORT INFORMATION
  Report Type: Spontaneous
  Country: GB (occurrence: GB)
  Receive Date: 20191126
  Receipt Date: 20191126
  Transmission Date: 20200122
  Serious: Yes (Other)
  Sender: FDA-Public Use
  Company Number: GB-PFIZER INC-2019504152

PATIENT
  Age: 68 Year
  Sex: Female
  Weight: 81 kg

DRUGS (11)
  1. CLOBETASONE BUTYRATE [Concomitant]
     Active Substance: CLOBETASONE BUTYRATE
     Dosage: 2 DF, 1X/DAY (APPLY THINLY)
     Dates: start: 20190828, end: 20190925
  2. NIFEDIPRESS [Concomitant]
     Dosage: 2 DF, 1X/DAY
     Dates: start: 20190722
  3. OMEPRAZOLE. [Concomitant]
     Active Substance: OMEPRAZOLE
     Dosage: 2 DF, 1X/DAY
     Dates: start: 20190107
  4. PREDNISOLONE. [Concomitant]
     Active Substance: PREDNISOLONE
     Dosage: UNK (6,5,4,3,2 AND1 DAILY)
     Dates: start: 20190911, end: 20190912
  5. QUININE [Concomitant]
     Active Substance: QUININE
     Dosage: 1 DF, 1X/DAY (AT NIGHT)
     Dates: start: 20190927, end: 20190928
  6. ATORVASTATIN CALCIUM. [Suspect]
     Active Substance: ATORVASTATIN CALCIUM
     Dosage: 20 MG, 1X/DAY
     Dates: start: 20190107
  7. SALBUTAMOL [Concomitant]
     Active Substance: ALBUTEROL
     Dosage: 2 DF, UNK
     Route: 055
     Dates: start: 20190107
  8. CLOBETASOL PROPIONATE. [Concomitant]
     Active Substance: CLOBETASOL PROPIONATE
     Dosage: 2 DF, 1X/DAY (APPLY THINLY)
     Dates: start: 20190828, end: 20190925
  9. QVAR [Concomitant]
     Active Substance: BECLOMETHASONE DIPROPIONATE
     Dosage: 2 DF, 1X/DAY
     Route: 055
     Dates: start: 20190107
  10. BENDROFLUMETHIAZIDE [Concomitant]
     Active Substance: BENDROFLUMETHIAZIDE
     Dosage: 1 DF, 1X/DAY
     Dates: start: 20190107
  11. MOMETASONE [Concomitant]
     Active Substance: MOMETASONE
     Dosage: 2 DF, 1X/DAY (APPLY)
     Dates: start: 20190731, end: 20190828

REACTIONS (1)
  - Eczema [Recovering/Resolving]

NARRATIVE: CASE EVENT DATE: 20191024
